FAERS Safety Report 23529426 (Version 3)
Quarter: 2024Q1

REPORT INFORMATION
  Report Type: Other
  Country: US (occurrence: None)
  Receive Date: 20240216
  Receipt Date: 20240321
  Transmission Date: 20240409
  Serious: Yes (Death, Other)
  Sender: FDA-Public Use
  Company Number: US-ROCHE-3508931

PATIENT
  Age: 44 Year
  Sex: Male
  Weight: 49.94 kg

DRUGS (12)
  1. OCREVUS [Suspect]
     Active Substance: OCRELIZUMAB
     Indication: Primary progressive multiple sclerosis
     Route: 042
     Dates: start: 2018, end: 202303
  2. PAMELOR [Concomitant]
     Active Substance: NORTRIPTYLINE HYDROCHLORIDE
  3. AMPYRA [Concomitant]
     Active Substance: DALFAMPRIDINE
  4. PAXIL [Concomitant]
     Active Substance: PAROXETINE HYDROCHLORIDE
  5. BACLOFEN [Concomitant]
     Active Substance: BACLOFEN
  6. FLOMAX [Concomitant]
     Active Substance: TAMSULOSIN HYDROCHLORIDE
  7. LYRICA [Concomitant]
     Active Substance: PREGABALIN
  8. VOLTAREN [Concomitant]
     Active Substance: DICLOFENAC SODIUM
  9. OXYCODONE [Concomitant]
     Active Substance: OXYCODONE\OXYCODONE HYDROCHLORIDE
  10. MORPHINE [Concomitant]
     Active Substance: MORPHINE
  11. ATIVAN [Concomitant]
     Active Substance: LORAZEPAM
  12. LACTULOSE [Concomitant]
     Active Substance: LACTULOSE

REACTIONS (22)
  - Death [Fatal]
  - Brain neoplasm malignant [Unknown]
  - Urine flow decreased [Unknown]
  - Migraine [Unknown]
  - Anxiety [Unknown]
  - Pain [Unknown]
  - Dysphagia [Unknown]
  - Constipation [Unknown]
  - Stress [Unknown]
  - Thoracic radiculopathy [Unknown]
  - Polyneuropathy [Unknown]
  - Erectile dysfunction [Unknown]
  - Carpal tunnel syndrome [Unknown]
  - Nerve compression [Unknown]
  - Gait disturbance [Unknown]
  - Musculoskeletal stiffness [Unknown]
  - Muscle spasms [Unknown]
  - Muscle spasms [Unknown]
  - Muscle spasticity [Unknown]
  - Fall [Unknown]
  - Adrenal gland cancer [Unknown]
  - Lung neoplasm malignant [Unknown]

NARRATIVE: CASE EVENT DATE: 20230601
